FAERS Safety Report 10670664 (Version 1)
Quarter: 2014Q4

REPORT INFORMATION
  Report Type: Other
  Country: IT (occurrence: IT)
  Receive Date: 20141223
  Receipt Date: 20141223
  Transmission Date: 20150529
  Serious: Yes (Other)
  Sender: FDA-Public Use
  Company Number: IT-MYLANLABS-2014M1013897

PATIENT

DRUGS (3)
  1. TENORMIN [Suspect]
     Active Substance: ATENOLOL
     Indication: HYPERTENSION
     Dosage: 100 MG, QD
     Route: 048
     Dates: start: 20141101, end: 20141120
  2. PRITORPLUS [Suspect]
     Active Substance: HYDROCHLOROTHIAZIDE\TELMISARTAN
     Indication: HYPERTENSION
     Dosage: 105 MG, QD
     Route: 048
     Dates: start: 20141101, end: 20141120
  3. AMLODIPINE [Suspect]
     Active Substance: AMLODIPINE BESYLATE
     Indication: HYPERTENSION
     Dosage: 5 MG, QD
     Route: 048
     Dates: start: 20141101, end: 20141120

REACTIONS (2)
  - Headache [Recovering/Resolving]
  - No therapeutic response [Recovering/Resolving]

NARRATIVE: CASE EVENT DATE: 20141120
